FAERS Safety Report 6574594-4 (Version None)
Quarter: 2010Q1

REPORT INFORMATION
  Report Type: 
  Country: None (occurrence: None)
  Receive Date: 20100209
  Receipt Date: 20100126
  Transmission Date: 20100710
  Serious: Yes (Other)
  Sender: FDA-Public Use
  Company Number: US-CELGENEUS-163-C5013-10010990

PATIENT
  Sex: Male
  Weight: 83.672 kg

DRUGS (20)
  1. CC-5013 [Suspect]
     Indication: MULTIPLE MYELOMA
     Route: 048
     Dates: start: 20091123, end: 20091214
  2. CC-5013 [Suspect]
     Route: 048
     Dates: start: 20091221
  3. DEXAMETHASONE [Suspect]
     Indication: MULTIPLE MYELOMA
     Route: 065
     Dates: start: 20091123
  4. AMMONIUM LACTATE [Concomitant]
     Indication: DRY SKIN
     Route: 061
     Dates: start: 20080101, end: 20091201
  5. AMMONIUM LACTATE [Concomitant]
  6. ACETAMINOPHEN [Concomitant]
     Route: 048
     Dates: start: 19940101
  7. SIMETHICONE [Concomitant]
     Route: 048
     Dates: start: 20090101
  8. TRAVOPROST [Concomitant]
     Indication: DRUG USE FOR UNKNOWN INDICATION
     Route: 047
     Dates: start: 20090101
  9. LORTAB [Concomitant]
     Dosage: 5/500
     Route: 048
     Dates: start: 20091204
  10. WARFARIN SODIUM [Concomitant]
     Indication: ATRIAL FIBRILLATION
     Dosage: DOSE BASED ON PT/INR RESULTS
     Route: 048
     Dates: start: 19940101
  11. LOVAZA [Concomitant]
     Indication: PROPHYLAXIS
     Route: 048
     Dates: start: 19940101
  12. SIMVASTATIN [Concomitant]
     Route: 048
     Dates: start: 20060101
  13. DIGOXIN [Concomitant]
     Indication: ATRIAL FIBRILLATION
     Route: 048
     Dates: start: 19940101
  14. PHENYTOIN [Concomitant]
     Route: 065
     Dates: start: 19940101
  15. ALENDRONATE SODIUM [Concomitant]
     Indication: OSTEOPENIA
     Route: 065
     Dates: start: 20050101
  16. LASIX [Concomitant]
     Indication: HYPERTENSION
     Route: 065
     Dates: start: 19940101
  17. TERAZOSIN HCL [Concomitant]
     Route: 065
     Dates: start: 20070101
  18. VITAMIN C [Concomitant]
     Indication: PROPHYLAXIS
     Route: 065
  19. POTASSIUM CHLORIDE [Concomitant]
     Indication: SUPPLEMENTATION THERAPY
     Route: 065
     Dates: start: 19940101
  20. SPIRONOLACTONE [Concomitant]
     Indication: HYPERTENSION
     Route: 065
     Dates: start: 19940101

REACTIONS (1)
  - NEUTROPENIA [None]
